FAERS Safety Report 4577230-1 (Version None)
Quarter: 2005Q1

REPORT INFORMATION
  Report Type: 
  Country: None (occurrence: None)
  Receive Date: 20050209
  Receipt Date: 20050126
  Transmission Date: 20050727
  Serious: Yes (Death)
  Sender: FDA-Public Use
  Company Number: 2004AL001032

PATIENT
  Age: 32 Year
  Sex: Male

DRUGS (6)
  1. ACETAMINOPHEN [Suspect]
     Dosage: PO
     Route: 048
  2. ACETAMINOPHEN [Suspect]
     Dosage: PO
     Route: 048
  3. ASPIRIN [Suspect]
     Dosage: PO
     Route: 048
  4. OLANZAPINE [Suspect]
     Dosage: PO
     Route: 048
  5. PIOGLITAZONE [Concomitant]
  6. SIMVASTATIN [Concomitant]

REACTIONS (11)
  - ANION GAP [None]
  - BLOOD ETHANOL INCREASED [None]
  - BLOOD PH DECREASED [None]
  - COMPLETED SUICIDE [None]
  - DEPRESSION [None]
  - DRUG TOXICITY [None]
  - HAEMODIALYSIS [None]
  - PCO2 DECREASED [None]
  - PNEUMONIA ASPIRATION [None]
  - SINUS TACHYCARDIA [None]
  - TACHYPNOEA [None]
